FAERS Safety Report 10226469 (Version 2)
Quarter: 2015Q4

REPORT INFORMATION
  Report Type: Spontaneous
  Country: US (occurrence: US)
  Receive Date: 20140609
  Receipt Date: 20151013
  Transmission Date: 20160304
  Serious: No
  Sender: FDA-Public Use
  Company Number: US-AMGEN-USASP2013055218

PATIENT
  Age: 19 Year
  Sex: Female
  Weight: 45.45 kg

DRUGS (2)
  1. NEUPOGEN [Suspect]
     Active Substance: FILGRASTIM
     Indication: PRODUCT USED FOR UNKNOWN INDICATION
     Dosage: UNK
     Route: 065
  2. EPOGEN [Suspect]
     Active Substance: ERYTHROPOIETIN
     Indication: CHRONIC KIDNEY DISEASE
     Dosage: 22000 UNIT, 3 TIMES/WK
     Route: 065

REACTIONS (3)
  - Red blood cell count decreased [Unknown]
  - Blood iron increased [Unknown]
  - White blood cell count decreased [Unknown]
